FAERS Safety Report 14671096 (Version 1)
Quarter: 2018Q1

REPORT INFORMATION
  Report Type: Spontaneous
  Country: US (occurrence: US)
  Receive Date: 20180322
  Receipt Date: 20180322
  Transmission Date: 20180509
  Serious: No
  Sender: FDA-Public Use
  Company Number: None

PATIENT
  Age: 67 Year
  Sex: Male
  Weight: 76.66 kg

DRUGS (2)
  1. PREGABALIN. [Suspect]
     Active Substance: PREGABALIN
     Indication: PAIN
     Route: 048
     Dates: start: 20170829, end: 20180125
  2. OXYBUTYNIN. [Suspect]
     Active Substance: OXYBUTYNIN CHLORIDE

REACTIONS (5)
  - Abdominal discomfort [None]
  - Dry mouth [None]
  - Oropharyngeal pain [None]
  - Complex regional pain syndrome [None]
  - Abdominal distension [None]

NARRATIVE: CASE EVENT DATE: 20180125
